FAERS Safety Report 8130335-0 (Version None)
Quarter: 2012Q1

REPORT INFORMATION
  Report Type: 
  Country: None (occurrence: None)
  Receive Date: 20120210
  Receipt Date: 20120206
  Transmission Date: 20120608
  Serious: Yes (Hospitalization, Other)
  Sender: FDA-Public Use
  Company Number: PHHY2012NL010565

PATIENT
  Sex: Male

DRUGS (4)
  1. ZOMETA [Suspect]
     Indication: PROSTATE CANCER METASTATIC
     Dosage: 4 MG/100ML, 1X PER 28 DAYS
     Dates: start: 20101013
  2. ANTIBIOTICS [Concomitant]
  3. ZOMETA [Suspect]
     Dosage: 4 MG/100ML,1X PER 28 DAYS
     Dates: start: 20120109
  4. ZOMETA [Suspect]
     Dosage: 4 MG/100ML,1X PER 28 DAYS
     Dates: start: 20120206

REACTIONS (2)
  - ANAEMIA [None]
  - PNEUMONIA [None]
